FAERS Safety Report 9221141 (Version 1)
Quarter: 2013Q2

REPORT INFORMATION
  Report Type: Spontaneous
  Country: US (occurrence: US)
  Receive Date: 20130409
  Receipt Date: 20130409
  Transmission Date: 20140414
  Serious: No
  Sender: FDA-Public Use
  Company Number: US-009507513-1304USA002534

PATIENT
  Age: 72 Year
  Sex: Male

DRUGS (5)
  1. ZETIA [Suspect]
     Indication: BLOOD CHOLESTEROL INCREASED
     Dosage: 5 MG, ONCE A DAY
     Route: 048
     Dates: start: 20121003, end: 20130327
  2. METFORMIN [Concomitant]
  3. GLIMEPIRIDE [Concomitant]
  4. AMLODIPINE [Concomitant]
  5. DIOVAN [Concomitant]

REACTIONS (3)
  - Rash [Recovering/Resolving]
  - Underdose [Unknown]
  - Wrong technique in drug usage process [Unknown]
